FAERS Safety Report 15852613 (Version 3)
Quarter: 2019Q4

REPORT INFORMATION
  Report Type: Spontaneous
  Country: US (occurrence: US)
  Receive Date: 20190122
  Receipt Date: 20191202
  Transmission Date: 20200122
  Serious: Yes (Other)
  Sender: FDA-Public Use
  Company Number: US-BAYER-2019-011130

PATIENT
  Age: 57 Year
  Sex: Female

DRUGS (1)
  1. MIRENA [Suspect]
     Active Substance: LEVONORGESTREL
     Indication: CONTRACEPTION
     Dosage: 20 MCG/24HR, CONT
     Route: 015
     Dates: start: 20061006, end: 20140416

REACTIONS (8)
  - Screaming [Not Recovered/Not Resolved]
  - Off label use of device [None]
  - Vocal cord disorder [Not Recovered/Not Resolved]
  - Device use issue [None]
  - Cognitive disorder [None]
  - Generalised tonic-clonic seizure [Not Recovered/Not Resolved]
  - Tongue biting [Not Recovered/Not Resolved]
  - Seizure [Not Recovered/Not Resolved]

NARRATIVE: CASE EVENT DATE: 201407
